FAERS Safety Report 5914412-8 (Version None)
Quarter: 2008Q4

REPORT INFORMATION
  Report Type: 
  Country: None (occurrence: None)
  Receive Date: 20081007
  Receipt Date: 20080925
  Transmission Date: 20090506
  Serious: Yes (Hospitalization, Other)
  Sender: FDA-Public Use
  Company Number: 2008S1017497

PATIENT
  Age: 39 Year
  Sex: Female
  Weight: 50.3493 kg

DRUGS (2)
  1. ESTRADIOL [Suspect]
     Indication: HORMONE REPLACEMENT THERAPY
     Dosage: 0.5 MG;DAILY; ORAL
     Route: 048
     Dates: start: 20080904, end: 20080916
  2. LEVOTHYROXINE SODIUM [Concomitant]

REACTIONS (4)
  - ERYTHEMA [None]
  - PRURITUS [None]
  - RASH [None]
  - URTICARIA [None]
